FAERS Safety Report 18506181 (Version 4)
Quarter: 2021Q2

REPORT INFORMATION
  Report Type: Spontaneous
  Country: US (occurrence: US)
  Receive Date: 20201116
  Receipt Date: 20210407
  Transmission Date: 20210717
  Serious: Yes (Other)
  Sender: FDA-Public Use
  Company Number: US-PFIZER INC-2020413653

PATIENT
  Age: 67 Year
  Sex: Female

DRUGS (3)
  1. IBRANCE [Suspect]
     Active Substance: PALBOCICLIB
     Indication: THROAT CANCER
     Dosage: 75 MG
  2. IBRANCE [Suspect]
     Active Substance: PALBOCICLIB
     Indication: HEAD AND NECK CANCER
     Dosage: 125 MG, 1X/DAY (1 CAP PEG TUBE ONCE A DAY)
  3. CETUXIMAB. [Concomitant]
     Active Substance: CETUXIMAB
     Indication: HEAD AND NECK CANCER
     Dosage: UNK

REACTIONS (6)
  - Off label use [Unknown]
  - Neoplasm progression [Unknown]
  - Anaemia [Unknown]
  - Blood count abnormal [Unknown]
  - Asthenia [Unknown]
  - Speech disorder [Unknown]
